FAERS Safety Report 7578264-5 (Version None)
Quarter: 2011Q2

REPORT INFORMATION
  Report Type: 
  Country: None (occurrence: None)
  Receive Date: 20110628
  Receipt Date: 20110621
  Transmission Date: 20111010
  Serious: Yes (Other)
  Sender: FDA-Public Use
  Company Number: SE-JNJFOC-20110609295

PATIENT
  Age: 46 Year
  Sex: Female

DRUGS (3)
  1. ZOLOFT [Concomitant]
     Route: 065
  2. CONCERTA [Suspect]
     Indication: PRODUCT USED FOR UNKNOWN INDICATION
     Route: 048
  3. IMOVANE [Concomitant]
     Route: 065

REACTIONS (1)
  - THROMBOSIS [None]
